FAERS Safety Report 18358767 (Version 1)
Quarter: 2020Q4

REPORT INFORMATION
  Report Type: Spontaneous
  Country: CH (occurrence: CH)
  Receive Date: 20201008
  Receipt Date: 20201008
  Transmission Date: 20210114
  Serious: Yes (Death, Life-Threatening, Hospitalization, Disabling)
  Sender: FDA-Public Use
  Company Number: CH-TEVA-2020-CH-1836231

PATIENT
  Age: 75 Year
  Sex: Male

DRUGS (24)
  1. IMIPENEM AND CILASTATIN [Suspect]
     Active Substance: CILASTATIN SODIUM\IMIPENEM
     Dosage: 500 MILLIGRAM DAILY;
     Route: 041
     Dates: start: 20200422, end: 20200422
  2. PERINDOPRIL/INDAPAMIDE [Suspect]
     Active Substance: INDAPAMIDE\PERINDOPRIL
     Indication: CEREBROVASCULAR ACCIDENT
     Dosage: 10/2.5 1X PER DAY
     Route: 048
     Dates: start: 20200330, end: 20200407
  3. AMLODIPINE [Concomitant]
     Active Substance: AMLODIPINE BESYLATE
     Dates: start: 20200330, end: 20200421
  4. PIPERACILLIN/TAZOBACTAM [Suspect]
     Active Substance: PIPERACILLIN SODIUM\TAZOBACTAM SODIUM
     Indication: PNEUMONIA BACTERIAL
     Dosage: 9 GRAM DAILY;
     Route: 041
     Dates: start: 20200411, end: 20200414
  5. PIPERACILLIN/TAZOBACTAM [Suspect]
     Active Substance: PIPERACILLIN SODIUM\TAZOBACTAM SODIUM
     Dosage: 6.75 GRAM DAILY;
     Route: 041
     Dates: start: 20200414, end: 20200419
  6. ACIDE ACETYLSALICYLIQUE [Suspect]
     Active Substance: ASPIRIN
     Indication: CARDIAC VALVE DISEASE
  7. AMOXICILLINE/ACIDE CLAVULANIQUE [Suspect]
     Active Substance: AMOXICILLIN\CLAVULANIC ACID
     Dosage: 1250 MILLIGRAM DAILY;
     Route: 041
     Dates: start: 20200403, end: 20200404
  8. LOPINAVIR/RITONAVIR [Concomitant]
     Active Substance: LOPINAVIR\RITONAVIR
     Dosage: IN TOTAL
     Dates: start: 20200331, end: 20200331
  9. HEPARIN [Concomitant]
     Active Substance: HEPARIN SODIUM
     Dates: start: 20200331, end: 20200422
  10. LEVOTHYROXINE. [Concomitant]
     Active Substance: LEVOTHYROXINE
     Dates: start: 20200331, end: 20200422
  11. TORASEMIDE [Concomitant]
     Active Substance: TORSEMIDE
     Dates: start: 20200406, end: 20200422
  12. PERINDOPRIL [Suspect]
     Active Substance: PERINDOPRIL
     Indication: HYPERTENSION
     Dosage: 5 MILLIGRAM DAILY;
     Route: 048
     Dates: start: 20200410, end: 20200421
  13. PERINDOPRIL/INDAPAMIDE [Suspect]
     Active Substance: INDAPAMIDE\PERINDOPRIL
     Dosage: 5/1.25
     Route: 048
     Dates: start: 20200407, end: 20200409
  14. DAFALGAN [Suspect]
     Active Substance: ACETAMINOPHEN
     Dosage: 3000 MILLIGRAM DAILY;
     Route: 048
     Dates: start: 20200331, end: 20200407
  15. ACIDE ACETYLSALICYLIQUE [Suspect]
     Active Substance: ASPIRIN
     Indication: MYOCARDIAL ISCHAEMIA
     Dosage: 100 MILLIGRAM DAILY;
     Route: 048
     Dates: start: 20200331, end: 20200422
  16. AMOXICILLINE/ACIDE CLAVULANIQUE [Suspect]
     Active Substance: AMOXICILLIN\CLAVULANIC ACID
     Indication: RESPIRATORY TRACT INFECTION
     Dosage: 1200 MILLIGRAM DAILY;
     Route: 041
     Dates: start: 20200330, end: 20200402
  17. SIMVASTATINE [Suspect]
     Active Substance: SIMVASTATIN
     Dosage: 20 MILLIGRAM DAILY;
     Route: 048
     Dates: start: 20200408, end: 20200415
  18. DAFALGAN [Suspect]
     Active Substance: ACETAMINOPHEN
     Dosage: 3000 MILLIGRAM DAILY;
     Route: 048
     Dates: start: 20200409, end: 20200410
  19. SIMVASTATINE [Suspect]
     Active Substance: SIMVASTATIN
     Dosage: 40 MILLIGRAM DAILY;
     Route: 048
     Dates: start: 20200330, end: 20200407
  20. CLONAZEPAM. [Concomitant]
     Active Substance: CLONAZEPAM
     Dates: start: 20200422, end: 20200422
  21. SODIUM POLYSTYRENE SULFONATE. [Concomitant]
     Active Substance: SODIUM POLYSTYRENE SULFONATE
     Dates: start: 20200421, end: 20200421
  22. ACIDE ACETYLSALICYLIQUE [Suspect]
     Active Substance: ASPIRIN
     Indication: CEREBROVASCULAR ACCIDENT
  23. DUTASTERIDE;TAMSULOSIN [Concomitant]
     Dates: start: 20200331, end: 20200421
  24. MORPHINE [Concomitant]
     Active Substance: MORPHINE
     Dates: start: 20200421, end: 20200422

REACTIONS (1)
  - Eosinophilic pneumonia acute [Fatal]

NARRATIVE: CASE EVENT DATE: 202004
